FAERS Safety Report 8448123-4 (Version None)
Quarter: 2012Q2

REPORT INFORMATION
  Report Type: 
  Country: None (occurrence: None)
  Receive Date: 20120612
  Receipt Date: 20120531
  Transmission Date: 20120825
  Serious: Yes (Hospitalization)
  Sender: FDA-Public Use
  Company Number: 2012SP029677

PATIENT
  Age: 44 Year
  Sex: Male

DRUGS (2)
  1. DECA-DURABOLIN [Suspect]
     Indication: PRODUCT USED FOR UNKNOWN INDICATION
     Dosage: ;BIW;IM
  2. TESTOSTERONE PROPIONATE [Suspect]
     Indication: PRODUCT USED FOR UNKNOWN INDICATION
     Dosage: ;BIW;IM
     Route: 030

REACTIONS (10)
  - BLOOD TESTOSTERONE DECREASED [None]
  - HEPARIN RESISTANCE [None]
  - BLOOD TESTOSTERONE FREE INCREASED [None]
  - LUNG CONSOLIDATION [None]
  - PULMONARY INFARCTION [None]
  - VENOUS PRESSURE JUGULAR DECREASED [None]
  - MYOCARDIAL FIBROSIS [None]
  - HAEMOPTYSIS [None]
  - HAEMATOCRIT INCREASED [None]
  - CARDIAC FAILURE [None]
